FAERS Safety Report 11158537 (Version 1)
Quarter: 2015Q2

REPORT INFORMATION
  Report Type: Spontaneous
  Country: US (occurrence: US)
  Receive Date: 20150603
  Receipt Date: 20150603
  Transmission Date: 20150821
  Serious: Yes (Death, Life-Threatening, Other)
  Sender: FDA-Public Use
  Company Number: US-ASTRAZENECA-2014SE75778

PATIENT
  Age: 621 Month
  Sex: Female
  Weight: 73.5 kg

DRUGS (8)
  1. BYETTA [Suspect]
     Active Substance: EXENATIDE
     Indication: DIABETES MELLITUS
     Route: 058
     Dates: start: 20070401, end: 20080313
  2. LEVOXYL [Concomitant]
     Active Substance: LEVOTHYROXINE SODIUM
  3. LIPITOR [Concomitant]
     Active Substance: ATORVASTATIN CALCIUM
  4. LASIX [Concomitant]
     Active Substance: FUROSEMIDE
  5. FLOVENT [Concomitant]
     Active Substance: FLUTICASONE PROPIONATE
  6. METFORMIN HYDROCHLORIDE. [Concomitant]
     Active Substance: METFORMIN HYDROCHLORIDE
  7. ENALAPRIL MALEATE. [Concomitant]
     Active Substance: ENALAPRIL MALEATE
  8. BYETTA [Suspect]
     Active Substance: EXENATIDE
     Indication: DIABETES MELLITUS
     Route: 065
     Dates: start: 20070622

REACTIONS (5)
  - Metastases to liver [Unknown]
  - Pancreatic carcinoma metastatic [Fatal]
  - Weight decreased [Unknown]
  - Abdominal pain [Unknown]
  - Metastases to lung [Unknown]

NARRATIVE: CASE EVENT DATE: 200704
